FAERS Safety Report 8531834-X (Version None)
Quarter: 2012Q3

REPORT INFORMATION
  Report Type: 
  Country: None (occurrence: None)
  Receive Date: 20120723
  Receipt Date: 20120718
  Transmission Date: 20120928
  Serious: No
  Sender: FDA-Public Use
  Company Number: US-PFIZER INC-2012173925

PATIENT
  Sex: Female

DRUGS (4)
  1. ADVIL [Suspect]
     Indication: MUSCULOSKELETAL PAIN
  2. ADVIL [Suspect]
  3. ADVIL [Suspect]
     Dosage: UNK, 2X/DAY
     Route: 048
  4. ADVIL [Suspect]
     Indication: INFLAMMATION
     Dosage: UNK, 2X/DAY
     Route: 048

REACTIONS (3)
  - INCORRECT DRUG DOSAGE FORM ADMINISTERED [None]
  - BONE LOSS [None]
  - INCORRECT DRUG ADMINISTRATION DURATION [None]
